FAERS Safety Report 7472886-8 (Version None)
Quarter: 2011Q2

REPORT INFORMATION
  Report Type: 
  Country: None (occurrence: None)
  Receive Date: 20110511
  Receipt Date: 20110429
  Transmission Date: 20111010
  Serious: Yes (Death, Other)
  Sender: FDA-Public Use
  Company Number: FR-CELGENEUS-056-22393-11050241

PATIENT
  Sex: Male

DRUGS (1)
  1. ISTODAX [Suspect]
     Indication: T-CELL LYMPHOMA
     Dosage: 14 MILLIGRAM/SQ. METER
     Route: 051
     Dates: start: 20110406, end: 20110421

REACTIONS (1)
  - T-CELL LYMPHOMA [None]
